FAERS Safety Report 23375221 (Version 1)
Quarter: 2024Q1

REPORT INFORMATION
  Report Type: Report from Study
  Country: US (occurrence: US)
  Receive Date: 20240106
  Receipt Date: 20240106
  Transmission Date: 20240409
  Serious: Yes (Other)
  Sender: FDA-Public Use
  Company Number: US-ABBVIE-5566709

PATIENT
  Sex: Male

DRUGS (1)
  1. HUMIRA [Suspect]
     Active Substance: ADALIMUMAB
     Indication: Crohn^s disease
     Dosage: FORM STRENGTH: 40 MILLIGRAM
     Route: 058
     Dates: start: 2023, end: 2023

REACTIONS (4)
  - Cranioplasty [Recovering/Resolving]
  - Muscle flap operation [Recovering/Resolving]
  - Staphylococcus test positive [Unknown]
  - Skin graft [Recovering/Resolving]

NARRATIVE: CASE EVENT DATE: 20230101
